FAERS Safety Report 17830180 (Version 10)
Quarter: 2020Q4

REPORT INFORMATION
  Report Type: Report from Study
  Country: ES (occurrence: ES)
  Receive Date: 20200527
  Receipt Date: 20201102
  Transmission Date: 20210113
  Serious: Yes (Life-Threatening)
  Sender: FDA-Public Use
  Company Number: ES-EISAI MEDICAL RESEARCH-EC-2020-075126

PATIENT
  Age: 58 Year
  Sex: Female
  Weight: 65.7 kg

DRUGS (16)
  1. CARBOPLATIN. [Concomitant]
     Active Substance: CARBOPLATIN
     Dates: start: 20200429
  2. ZOLICO [Concomitant]
     Dates: start: 20200311
  3. HIDROALTESONA [Concomitant]
     Active Substance: HYDROCORTISONE
     Dates: start: 20200429
  4. PEMBROLIZUMAB. [Suspect]
     Active Substance: PEMBROLIZUMAB
     Indication: NON-SMALL CELL LUNG CANCER METASTATIC
     Route: 041
     Dates: start: 20200429, end: 20200429
  5. MYCOSTATIN [Concomitant]
     Active Substance: NYSTATIN
     Dates: start: 20200311
  6. BENADON [Concomitant]
     Active Substance: PYRIDOXINE HYDROCHLORIDE
     Dates: start: 20200311
  7. NAPROXEN. [Concomitant]
     Active Substance: NAPROXEN
     Dates: start: 20200429
  8. PRIMPERAN [Concomitant]
     Active Substance: METOCLOPRAMIDE HYDROCHLORIDE
     Dates: start: 20200311
  9. PEMBROLIZUMAB. [Suspect]
     Active Substance: PEMBROLIZUMAB
     Route: 041
     Dates: start: 20200527
  10. LENVATINIB [Suspect]
     Active Substance: LENVATINIB
     Indication: NON-SMALL CELL LUNG CANCER METASTATIC
     Route: 048
     Dates: start: 20200429, end: 20200519
  11. PEMETREXED. [Suspect]
     Active Substance: PEMETREXED
     Route: 041
     Dates: start: 20200527
  12. OMEPRAZOLE. [Concomitant]
     Active Substance: OMEPRAZOLE
     Dates: start: 20190905
  13. PEMETREXED. [Suspect]
     Active Substance: PEMETREXED
     Indication: NON-SMALL CELL LUNG CANCER METASTATIC
     Route: 041
     Dates: start: 20200429, end: 20200429
  14. DIAZEPAM. [Concomitant]
     Active Substance: DIAZEPAM
     Dates: start: 20200217
  15. BENERVA [Concomitant]
     Active Substance: THIAMINE HYDROCHLORIDE
     Dates: start: 20200311
  16. OPTOVITE B12 [Concomitant]
     Active Substance: CYANOCOBALAMIN
     Dates: start: 20200311

REACTIONS (1)
  - Pulmonary embolism [Recovered/Resolved]

NARRATIVE: CASE EVENT DATE: 20200520
